FAERS Safety Report 4357297-6 (Version None)
Quarter: 2004Q2

REPORT INFORMATION
  Report Type: 
  Country: None (occurrence: None)
  Receive Date: 20040512
  Receipt Date: 20040512
  Transmission Date: 20050107
  Serious: Yes (Death, Hospitalization)
  Sender: FDA-Public Use
  Company Number: None

PATIENT
  Age: 76 Year
  Sex: Male
  Weight: 150.3 kg

DRUGS (6)
  1. EPOGEN [Suspect]
     Indication: ANAEMIA
     Dosage: 4000 UNIT WEEKLY , SC (057)
     Route: 058
     Dates: start: 20040412, end: 20040426
  2. EPOGEN [Suspect]
     Indication: ANAEMIA
     Dosage: 60000 U WEEKLY SC (0057)
     Route: 058
     Dates: start: 20040503
  3. GEMZAR [Concomitant]
  4. RADIATION [Concomitant]
  5. MARINOL [Concomitant]
  6. MEGACE [Concomitant]

REACTIONS (7)
  - ACUTE PULMONARY OEDEMA [None]
  - CARDIO-RESPIRATORY ARREST [None]
  - CHOLANGITIS ACUTE [None]
  - HEPATIC FAILURE [None]
  - MYOCARDIAL INFARCTION [None]
  - RENAL FAILURE [None]
  - RESPIRATORY FAILURE [None]
